FAERS Safety Report 23629892 (Version 1)
Quarter: 2024Q1

REPORT INFORMATION
  Report Type: Spontaneous
  Country: US (occurrence: US)
  Receive Date: 20240314
  Receipt Date: 20240314
  Transmission Date: 20240410
  Serious: No
  Sender: FDA-Public Use
  Company Number: US-ASTELLAS-2023US009566

PATIENT
  Age: 78 Year
  Sex: Male

DRUGS (1)
  1. ISAVUCONAZOLE [Suspect]
     Active Substance: ISAVUCONAZOLE
     Indication: Product used for unknown indication
     Dosage: 372 MG, ONCE DAILY (186 MG, 2 CAPSULES)
     Route: 065
     Dates: start: 202303

REACTIONS (3)
  - Grip strength decreased [Unknown]
  - Pain [Unknown]
  - Paraesthesia [Unknown]
